FAERS Safety Report 12952756 (Version 1)
Quarter: 2016Q4

REPORT INFORMATION
  Report Type: Spontaneous
  Country: US (occurrence: US)
  Receive Date: 20161117
  Receipt Date: 20161117
  Transmission Date: 20170207
  Serious: Yes (Hospitalization)
  Sender: FDA-Public Use
  Company Number: US-SIGMA-TAU US-2016STPI000883

PATIENT
  Sex: Female

DRUGS (2)
  1. MATULANE [Suspect]
     Active Substance: PROCARBAZINE HYDROCHLORIDE
     Indication: NEOPLASM
     Dosage: 100 MG, DAYS 8-21
     Route: 048
     Dates: start: 20160817
  2. LOMUSTINE. [Concomitant]
     Active Substance: LOMUSTINE

REACTIONS (2)
  - Blister [Unknown]
  - Toxicity to various agents [Unknown]
